FAERS Safety Report 23631553 (Version 1)
Quarter: 2024Q1

REPORT INFORMATION
  Report Type: Spontaneous
  Country: US (occurrence: None)
  Receive Date: 20240314
  Receipt Date: 20240314
  Transmission Date: 20240409
  Serious: Yes (Other)
  Sender: FDA-Public Use
  Company Number: None

PATIENT
  Age: 47 Year
  Sex: Male
  Weight: 83.3 kg

DRUGS (14)
  1. QELBREE [Suspect]
     Active Substance: VILOXAZINE HYDROCHLORIDE
     Indication: Attention deficit hyperactivity disorder
     Dates: start: 20230318, end: 20230502
  2. TRINTELLLIX [Concomitant]
  3. GABAPENTIN [Concomitant]
  4. LISINOPRIL [Concomitant]
  5. ALLOPURINOL [Concomitant]
     Active Substance: ALLOPURINOL
  6. TRAZODONE [Concomitant]
     Active Substance: TRAZODONE HYDROCHLORIDE
  7. NON-rX: DIPHENHYDRAMINE [Concomitant]
  8. non-R: MAGNESIUM [Concomitant]
  9. non-rX: VITAMIN D [Concomitant]
  10. non-Rx: MULTIVITAMIN [Concomitant]
  11. non-Rx: FIBER SUPPLEMENT [Concomitant]
  12. non-Rx: MELATONIN [Concomitant]
  13. non-Rx: TYLENOL [Concomitant]
  14. non-Rx: ALEVE [Concomitant]

REACTIONS (7)
  - Migraine without aura [None]
  - Withdrawal syndrome [None]
  - Cyclothymic disorder [None]
  - Stress [None]
  - Hypomania [None]
  - Nausea [None]
  - Vomiting [None]

NARRATIVE: CASE EVENT DATE: 20230502
